FAERS Safety Report 23611829 (Version 1)
Quarter: 2024Q1

REPORT INFORMATION
  Report Type: Spontaneous
  Country: US (occurrence: US)
  Receive Date: 20240308
  Receipt Date: 20240308
  Transmission Date: 20240410
  Serious: Yes (Other)
  Sender: FDA-Public Use
  Company Number: US-REGENERON PHARMACEUTICALS, INC.-2024-041367

PATIENT
  Sex: Female

DRUGS (1)
  1. PRALUENT [Suspect]
     Active Substance: ALIROCUMAB
     Indication: Hepatic enzyme increased
     Dosage: UNK MG
     Route: 058

REACTIONS (9)
  - Autoimmune thyroiditis [Unknown]
  - Spinal osteoarthritis [Unknown]
  - Malaise [Unknown]
  - Stress [Unknown]
  - Arthralgia [Unknown]
  - Osteoarthritis [Unknown]
  - Fibromyalgia [Unknown]
  - Hepatic enzyme abnormal [Unknown]
  - Myalgia [Unknown]
